FAERS Safety Report 17531685 (Version 1)
Quarter: 2020Q1

REPORT INFORMATION
  Report Type: Spontaneous
  Country: ES (occurrence: ES)
  Receive Date: 20200312
  Receipt Date: 20200312
  Transmission Date: 20200409
  Serious: Yes (Other)
  Sender: FDA-Public Use
  Company Number: ES-ASTRAZENECA-2020SE32862

PATIENT
  Age: 69 Year
  Sex: Male
  Weight: 83.8 kg

DRUGS (13)
  1. TRANGOREX [Concomitant]
     Active Substance: AMIODARONE HYDROCHLORIDE
  2. PANTOPRAZOLE [Concomitant]
     Active Substance: PANTOPRAZOLE
  3. ADIRO [Concomitant]
     Active Substance: ASPIRIN
  4. CINITAPRIDE. [Concomitant]
     Active Substance: CINITAPRIDE
  5. PIPERACILLIN AND TAZOBACTAM [Concomitant]
     Active Substance: PIPERACILLIN SODIUM\TAZOBACTAM SODIUM
  6. FUROSEMIDE. [Concomitant]
     Active Substance: FUROSEMIDE
  7. SODIUM HEPARIN [Concomitant]
     Active Substance: HEPARIN SODIUM
  8. SODIUM HEPARIN [Concomitant]
     Active Substance: HEPARIN SODIUM
  9. SEROQUEL [Suspect]
     Active Substance: QUETIAPINE FUMARATE
     Indication: AGITATION
     Route: 048
     Dates: start: 20190211
  10. FUROSEMIDE. [Concomitant]
     Active Substance: FUROSEMIDE
  11. ATROVENT [Concomitant]
     Active Substance: IPRATROPIUM BROMIDE
  12. CINITAPRIDE. [Concomitant]
     Active Substance: CINITAPRIDE
  13. GENTAMICIN. [Concomitant]
     Active Substance: GENTAMICIN

REACTIONS (1)
  - Drug reaction with eosinophilia and systemic symptoms [Recovered/Resolved]

NARRATIVE: CASE EVENT DATE: 20190211
